FAERS Safety Report 21664832 (Version 1)
Quarter: 2022Q4

REPORT INFORMATION
  Report Type: Spontaneous
  Country: None (occurrence: US)
  Receive Date: 20221130
  Receipt Date: 20221130
  Transmission Date: 20230112
  Serious: No
  Sender: FDA-Public Use
  Company Number: US-GREER Laboratories, Inc.-2135412

PATIENT
  Age: 9 Year
  Sex: Female
  Weight: 22.364 kg

DRUGS (1)
  1. ALLERGENIC EXTRACT- PEANUT ARACHIS HYPOGAEA [Suspect]
     Active Substance: ALLERGENIC EXTRACT- PEANUT ARACHIS HYPOGAEA
     Indication: Anaphylactic reaction
     Dates: start: 20220221, end: 20220221

REACTIONS (2)
  - No adverse event [None]
  - Drug ineffective [None]

NARRATIVE: CASE EVENT DATE: 20220221
